FAERS Safety Report 9631837 (Version 1)
Quarter: 2013Q4

REPORT INFORMATION
  Report Type: Spontaneous
  Country: AU (occurrence: AU)
  Receive Date: 20131018
  Receipt Date: 20131018
  Transmission Date: 20140711
  Serious: Yes (Death, Other)
  Sender: FDA-Public Use
  Company Number: AU-PFIZER INC-2013297748

PATIENT
  Age: 20 Year
  Sex: Female

DRUGS (1)
  1. VFEND [Suspect]
     Indication: ASPERGILLUS INFECTION
     Dosage: 4 MG/KG, UNK
     Route: 042

REACTIONS (3)
  - Death [Fatal]
  - Pathogen resistance [Not Recovered/Not Resolved]
  - Treatment failure [Unknown]
